FAERS Safety Report 13657019 (Version 2)
Quarter: 2017Q3

REPORT INFORMATION
  Report Type: Spontaneous
  Country: IE (occurrence: IE)
  Receive Date: 20170615
  Receipt Date: 20170710
  Transmission Date: 20171127
  Serious: Yes (Other)
  Sender: FDA-Public Use
  Company Number: IE-ABBVIE-17P-229-2007850-00

PATIENT
  Sex: Male

DRUGS (1)
  1. LEUPRORELIN ACETATE DEPOT [Suspect]
     Active Substance: LEUPROLIDE ACETATE
     Indication: PROSTATE CANCER
     Dosage: UNK
     Route: 065
     Dates: start: 201406

REACTIONS (12)
  - Atrial fibrillation [Unknown]
  - Flushing [Unknown]
  - Muscle haemorrhage [Unknown]
  - Peripheral sensory neuropathy [Unknown]
  - Muscle contusion [Unknown]
  - Hyperhidrosis [Unknown]
  - Loss of proprioception [Unknown]
  - Spinal cord injury [Unknown]
  - Pain in extremity [Unknown]
  - Fall [Unknown]
  - Romberg test positive [Unknown]
  - Neuralgia [Unknown]
